FAERS Safety Report 12934764 (Version 1)
Quarter: 2016Q4

REPORT INFORMATION
  Report Type: Spontaneous
  Country: US (occurrence: US)
  Receive Date: 20161112
  Receipt Date: 20161112
  Transmission Date: 20170207
  Serious: No
  Sender: FDA-Public Use
  Company Number: US-ZYDUS-011298

PATIENT
  Sex: Female

DRUGS (1)
  1. AMIODARONE [Suspect]
     Active Substance: AMIODARONE
     Indication: PRODUCT USED FOR UNKNOWN INDICATION
     Dosage: 2 TAB DAILY FOR 2 WEEKS, 2 TAB  AM AND PM X 4 DAYS, 2 TAB DAILY X3 DAY 1 TAB DAILY X3 DAYS FOR TOTAL
     Route: 048

REACTIONS (2)
  - White blood cell count decreased [Unknown]
  - Blood iron decreased [Unknown]

NARRATIVE: CASE EVENT DATE: 2016
